FAERS Safety Report 5549840-6 (Version None)
Quarter: 2007Q4

REPORT INFORMATION
  Report Type: 
  Country: None (occurrence: None)
  Receive Date: 20071212
  Receipt Date: 20071210
  Transmission Date: 20080405
  Serious: Yes (Other)
  Sender: FDA-Public Use
  Company Number: IT-BRISTOL-MYERS SQUIBB COMPANY-14009021

PATIENT

DRUGS (4)
  1. DIDANOSINE [Suspect]
  2. ACYCLOVIR CAPS [Suspect]
     Dosage: WEEK 2 = 3.5MG/KG DDL EVERY 12H, WEEK 3= 0.01 MG/KG DDC EVERY 8H
  3. ZIDOVUDINE [Suspect]
  4. ZALCITABINE [Suspect]

REACTIONS (16)
  - ANAEMIA [None]
  - ASPARTATE AMINOTRANSFERASE INCREASED [None]
  - FATIGUE [None]
  - GRANULOCYTOPENIA [None]
  - HERPES ZOSTER [None]
  - HIV INFECTION [None]
  - HYPERAMYLASAEMIA [None]
  - KAPOSI'S SARCOMA [None]
  - MALAISE [None]
  - NAUSEA [None]
  - NEUROPATHY PERIPHERAL [None]
  - OPPORTUNISTIC INFECTION [None]
  - RETINAL DISORDER [None]
  - STOMATITIS [None]
  - TRANSAMINASES INCREASED [None]
  - VOMITING [None]
